FAERS Safety Report 9925398 (Version 1)
Quarter: 2014Q1

REPORT INFORMATION
  Report Type: Spontaneous
  Country: US (occurrence: None)
  Receive Date: 20140224
  Receipt Date: 20140224
  Transmission Date: 20141002
  Serious: Yes (Death)
  Sender: FDA-Public Use
  Company Number: SYM-2014-17820

PATIENT
  Sex: Female

DRUGS (8)
  1. MACUGEN [Suspect]
     Indication: MACULAR DEGENERATION
     Dosage: 0.3 MG, INTRAVITREAL
     Route: 031
     Dates: start: 20131119, end: 20140107
  2. AMLODIPINE (AMLODIPINE) (AMLODIPINE) [Concomitant]
  3. LIPITOR (ATORVASTATIN CALCIUM) (ATORVASTATIN CALCIUM) [Concomitant]
  4. SINGULAIR (MONTELUKAST SODIUM) (MONTELUKAST SODIUM) [Concomitant]
  5. PLAVIX (CLOPIDOGREL BISULFATE) (CLOPIDOGREL BISULFATE) [Concomitant]
  6. EXFORGE (DIOVAN AMLO) (AMLODIPINE BESILATE, VALSARTAN) [Concomitant]
  7. ISOSORBIDE (ISOSORBIDE) (ISOSORBIDE) [Concomitant]
  8. NIZATIDINE (NIZATIDINE) (NIZATIDINE) [Concomitant]

REACTIONS (1)
  - Death [None]
